FAERS Safety Report 9994681 (Version 1)
Quarter: 2014Q1

REPORT INFORMATION
  Report Type: Spontaneous
  Country: US (occurrence: None)
  Receive Date: 20140307
  Receipt Date: 20140307
  Transmission Date: 20141002
  Serious: Yes (Hospitalization)
  Sender: FDA-Public Use
  Company Number: None

PATIENT
  Age: 74 Year
  Sex: Female

DRUGS (1)
  1. SUTENT [Suspect]
     Indication: RENAL CELL CARCINOMA
     Dosage: 50 MG PO DAILY X4WK, OFF 2WK, REPEAT
     Route: 048
     Dates: start: 20140129

REACTIONS (4)
  - Fatigue [None]
  - Nausea [None]
  - Diarrhoea [None]
  - Dehydration [None]
